FAERS Safety Report 11331405 (Version 5)
Quarter: 2015Q4

REPORT INFORMATION
  Report Type: Report from Study
  Country: IL (occurrence: IL)
  Receive Date: 20150803
  Receipt Date: 20151112
  Transmission Date: 20160304
  Serious: Yes (Hospitalization)
  Sender: FDA-Public Use
  Company Number: PHHY2015IL091981

PATIENT
  Age: 19 Year
  Sex: Male
  Weight: 50 kg

DRUGS (1)
  1. EXJADE [Suspect]
     Active Substance: DEFERASIROX
     Indication: THALASSAEMIA BETA
     Dosage: 2000 MG, QD
     Route: 048
     Dates: start: 20081101, end: 20151014

REACTIONS (3)
  - Liver abscess [Recovered/Resolved]
  - Abdominal pain [Unknown]
  - Pyrexia [Unknown]

NARRATIVE: CASE EVENT DATE: 20150622
